FAERS Safety Report 11835526 (Version 1)
Quarter: 2015Q4

REPORT INFORMATION
  Report Type: Spontaneous
  Country: US (occurrence: None)
  Receive Date: 20151214
  Receipt Date: 20151214
  Transmission Date: 20160305
  Serious: Yes (Other)
  Sender: FDA-Public Use
  Company Number: None

PATIENT
  Age: 63 Year
  Sex: Female
  Weight: 53.52 kg

DRUGS (3)
  1. PILMICORT [Concomitant]
  2. SYMBICORT [Suspect]
     Active Substance: BUDESONIDE\FORMOTEROL FUMARATE DIHYDRATE
     Indication: ASTHMA
     Dosage: 1 PUFF ONCE DAILY INHALATION
     Route: 055
  3. VENT ONLINE [Concomitant]

REACTIONS (5)
  - Prescribed underdose [None]
  - Hypertension [None]
  - No therapeutic response [None]
  - Palpitations [None]
  - Arrhythmia [None]

NARRATIVE: CASE EVENT DATE: 20150914
